FAERS Safety Report 8437598-2 (Version None)
Quarter: 2012Q2

REPORT INFORMATION
  Report Type: 
  Country: None (occurrence: None)
  Receive Date: 20120614
  Receipt Date: 20120409
  Transmission Date: 20120825
  Serious: No
  Sender: FDA-Public Use
  Company Number: US-AMGEN-USASP2012022387

PATIENT
  Age: 77 Year
  Sex: Female

DRUGS (10)
  1. WELCHOL [Concomitant]
     Dosage: 6 MG, QD
     Route: 048
  2. MULTIVITAMIN                       /00097801/ [Concomitant]
     Dosage: UNK
     Route: 048
  3. CELEBREX [Concomitant]
     Dosage: 1 MG, QD
     Route: 048
  4. VITAMIN D [Concomitant]
     Dosage: UNK
     Route: 048
  5. TOPROL-XL [Concomitant]
     Dosage: 2 MG, QD
     Route: 048
  6. CALCIUM WITH VITAMIN D             /00944201/ [Concomitant]
     Dosage: UNK
     Route: 048
  7. PROLIA [Suspect]
     Indication: OSTEOPOROSIS POSTMENOPAUSAL
     Dosage: UNK UNK, Q6MO
  8. DIOVAN [Concomitant]
     Dosage: 1 MG, QD
     Route: 048
  9. ACTIGALL [Concomitant]
     Dosage: 2 MG, QD
     Route: 048
  10. SYNTHROID [Concomitant]
     Dosage: 1 MUG, QD
     Route: 048

REACTIONS (3)
  - ERYTHEMA [None]
  - OCULAR HYPERAEMIA [None]
  - ERYTHEMA OF EYELID [None]
